FAERS Safety Report 8935173 (Version 1)
Quarter: 2012Q4

REPORT INFORMATION
  Report Type: 
  Country: CA (occurrence: CA)
  Receive Date: 20121129
  Receipt Date: 20121129
  Transmission Date: 20130627
  Serious: Yes (Other)
  Sender: FDA-Public Use
  Company Number: PHHY2011CA93852

PATIENT
  Sex: Female

DRUGS (3)
  1. SANDOSTATIN LAR [Suspect]
     Indication: NEUROENDOCRINE TUMOUR
     Dosage: 20 mg, every 4 weeks
     Route: 030
     Dates: start: 20110310
  2. SANDOSTATIN LAR [Suspect]
     Dosage: 20 mg every 4 weeks
     Route: 030
     Dates: start: 20110407
  3. SANDOSTATIN LAR [Suspect]
     Dosage: 20 mg every 4 weeks
     Route: 030
     Dates: start: 20120611

REACTIONS (5)
  - Diabetes mellitus [Recovering/Resolving]
  - Decreased appetite [Unknown]
  - Weight decreased [Unknown]
  - Insomnia [Unknown]
  - Fatigue [Unknown]
